FAERS Safety Report 10209888 (Version 1)
Quarter: 2014Q2

REPORT INFORMATION
  Report Type: Spontaneous
  Country: US (occurrence: US)
  Receive Date: 20140602
  Receipt Date: 20140602
  Transmission Date: 20141212
  Serious: Yes (Other)
  Sender: FDA-Public Use
  Company Number: US-ROCHE-1409905

PATIENT
  Sex: Female

DRUGS (24)
  1. XOLAIR [Suspect]
     Indication: PRODUCT USED FOR UNKNOWN INDICATION
     Route: 065
     Dates: start: 2007, end: 2009
  2. NORTRIPTYLINE [Suspect]
     Indication: PRODUCT USED FOR UNKNOWN INDICATION
     Route: 065
  3. CLINDAMYCIN [Suspect]
     Indication: PRODUCT USED FOR UNKNOWN INDICATION
     Route: 065
  4. CYCLOBENZAPRINE [Suspect]
     Indication: PRODUCT USED FOR UNKNOWN INDICATION
     Route: 065
  5. MIRTAZAPINE [Suspect]
     Indication: PRODUCT USED FOR UNKNOWN INDICATION
     Route: 065
  6. BETHANECHOL [Suspect]
     Indication: PRODUCT USED FOR UNKNOWN INDICATION
     Route: 065
  7. FORTEO [Suspect]
     Indication: PRODUCT USED FOR UNKNOWN INDICATION
     Route: 065
  8. FLEXERIL (UNITED STATES) [Suspect]
     Indication: PRODUCT USED FOR UNKNOWN INDICATION
     Route: 065
  9. SYNVISC [Suspect]
     Indication: PRODUCT USED FOR UNKNOWN INDICATION
     Route: 065
  10. KELIXIMAB [Suspect]
     Indication: PRODUCT USED FOR UNKNOWN INDICATION
     Route: 065
  11. SINGULAR [Concomitant]
  12. NUCYNTA [Concomitant]
     Route: 065
  13. GABAPENTIN [Concomitant]
  14. CALCITONIN [Concomitant]
  15. LOSARTAN [Concomitant]
  16. CLONAZEPAM [Concomitant]
     Route: 065
  17. REPAGLINIDE [Concomitant]
  18. FLUTICASONE PROPIONATE [Concomitant]
  19. FEXOFENADINE [Concomitant]
  20. TUDORZA PRESSAIR [Concomitant]
  21. DULERA [Concomitant]
  22. FISH OIL [Concomitant]
  23. NIACIN [Concomitant]
  24. ASPIRIN [Concomitant]

REACTIONS (22)
  - Viral infection [Unknown]
  - Asthma [Unknown]
  - Dyspnoea [Unknown]
  - Joint swelling [Unknown]
  - Muscle spasms [Unknown]
  - Abdominal pain upper [Unknown]
  - Nausea [Unknown]
  - Heart rate increased [Unknown]
  - Dizziness [Unknown]
  - Chest pain [Unknown]
  - Heart rate irregular [Unknown]
  - Oesophageal spasm [Unknown]
  - Headache [Unknown]
  - Fibromyalgia [Unknown]
  - Osteoporosis [Unknown]
  - Arthritis [Unknown]
  - Restless legs syndrome [Unknown]
  - Hiatus hernia [Unknown]
  - Hypertension [Unknown]
  - Hypothyroidism [Unknown]
  - Sleep apnoea syndrome [Unknown]
  - Drug hypersensitivity [None]
